FAERS Safety Report 4567945-3 (Version None)
Quarter: 2005Q1

REPORT INFORMATION
  Report Type: 
  Country: None (occurrence: None)
  Receive Date: 20050202
  Receipt Date: 20040813
  Transmission Date: 20050727
  Serious: No
  Sender: FDA-Public Use
  Company Number: US-GLAXOSMITHKLINE-A0522115A

PATIENT
  Sex: Male

DRUGS (2)
  1. NAVELBINE [Suspect]
     Indication: NON-SMALL CELL LUNG CANCER
     Dosage: 48MG SINGLE DOSE
     Route: 042
     Dates: start: 20040809
  2. NO CONCURRENT MEDICATION [Concomitant]

REACTIONS (1)
  - INFUSION SITE REACTION [None]
